FAERS Safety Report 7633517-7 (Version None)
Quarter: 2011Q3

REPORT INFORMATION
  Report Type: 
  Country: None (occurrence: None)
  Receive Date: 20110725
  Receipt Date: 20110725
  Transmission Date: 20111222
  Serious: Yes (Other)
  Sender: FDA-Public Use
  Company Number: US-ROXANE LABORATORIES, INC.-2011-RO-01056RO

PATIENT
  Age: 55 Year
  Sex: Female

DRUGS (2)
  1. ACARBOSE [Suspect]
  2. LEVETIRACETAM [Concomitant]

REACTIONS (1)
  - CONVULSION [None]
